FAERS Safety Report 25354753 (Version 1)
Quarter: 2025Q2

REPORT INFORMATION
  Report Type: Spontaneous
  Country: US (occurrence: US)
  Receive Date: 20250524
  Receipt Date: 20250524
  Transmission Date: 20250717
  Serious: No
  Sender: ROCHE
  Company Number: US-ROCHE-10000287405

PATIENT
  Age: 37 Year
  Sex: Female

DRUGS (2)
  1. XOLAIR PFS [Suspect]
     Active Substance: OMALIZUMAB
     Indication: Chronic spontaneous urticaria
     Route: 065
  2. XOLAIR PFS [Suspect]
     Active Substance: OMALIZUMAB
     Indication: Angioedema

REACTIONS (2)
  - Maternal exposure timing unspecified [Unknown]
  - No adverse event [Unknown]
